FAERS Safety Report 10538272 (Version 1)
Quarter: 2014Q4

REPORT INFORMATION
  Report Type: Spontaneous
  Country: CA (occurrence: CA)
  Receive Date: 20141023
  Receipt Date: 20141023
  Transmission Date: 20150529
  Serious: Yes (Hospitalization)
  Sender: FDA-Public Use
  Company Number: CA-PFIZER INC-2014286136

PATIENT
  Age: 35 Year
  Sex: Male
  Weight: 65 kg

DRUGS (7)
  1. ACETAMINOPHEN. [Concomitant]
     Active Substance: ACETAMINOPHEN
  2. AMPHOTERICIN B. [Suspect]
     Active Substance: AMPHOTERICIN B
     Dosage: 1.1 MG/KG, 1X/DAY
     Route: 065
  3. VFEND [Suspect]
     Active Substance: VORICONAZOLE
     Dosage: 300 MG, 2X/DAY
     Route: 048
  4. VFEND [Suspect]
     Active Substance: VORICONAZOLE
     Dosage: 6 MG/KG, 1 EVERY 12 HOURS
     Route: 042
  5. AMBISOME [Suspect]
     Active Substance: AMPHOTERICIN B
     Dosage: 5 MG/KG, 1X/DAY
     Route: 051
  6. AMPHOTERICIN B. [Suspect]
     Active Substance: AMPHOTERICIN B
     Dosage: 1.2 MG/KG, UNK
     Route: 051
  7. AMPHOTERICIN B. [Suspect]
     Active Substance: AMPHOTERICIN B
     Dosage: 0.6 MG/KG, 1X/DAY
     Route: 065

REACTIONS (10)
  - Rash [Unknown]
  - Blastomycosis [Unknown]
  - Dehydration [Unknown]
  - Hypernatraemia [Unknown]
  - Pleural effusion [Unknown]
  - Blood potassium decreased [Unknown]
  - Blood creatinine increased [Unknown]
  - White blood cell count increased [Unknown]
  - Pneumonia [Unknown]
  - Treatment failure [Unknown]
